FAERS Safety Report 17120087 (Version 2)
Quarter: 2020Q1

REPORT INFORMATION
  Report Type: Report from Study
  Country: US (occurrence: US)
  Receive Date: 20191206
  Receipt Date: 20200106
  Transmission Date: 20200409
  Serious: Yes (Death, Other)
  Sender: FDA-Public Use
  Company Number: NVSC2019US060857

PATIENT
  Age: 84 Year
  Sex: Female

DRUGS (1)
  1. ENTRESTO [Suspect]
     Active Substance: SACUBITRIL\VALSARTAN
     Indication: PRODUCT USED FOR UNKNOWN INDICATION
     Dosage: UNK
     Route: 065
     Dates: end: 20191014

REACTIONS (4)
  - Decreased appetite [Unknown]
  - Abdominal distension [Unknown]
  - Death [Fatal]
  - Adenocarcinoma [Unknown]

NARRATIVE: CASE EVENT DATE: 20191021
